FAERS Safety Report 8390983-X (Version None)
Quarter: 2012Q2

REPORT INFORMATION
  Report Type: 
  Country: None (occurrence: None)
  Receive Date: 20120529
  Receipt Date: 20120521
  Transmission Date: 20120825
  Serious: Yes (Hospitalization, Other)
  Sender: FDA-Public Use
  Company Number: US-BAYER-2012-037958

PATIENT
  Age: 47 Year
  Sex: Female

DRUGS (4)
  1. IRON SUPPLEMENT [Concomitant]
  2. YAZ [Suspect]
     Dosage: UNK
     Dates: start: 20071024, end: 20071206
  3. FEMCON FE [Concomitant]
  4. YASMIN [Suspect]
     Dosage: UNK
     Dates: start: 20071024, end: 20071206

REACTIONS (10)
  - PULMONARY EMBOLISM [None]
  - INJURY [None]
  - ELECTROCARDIOGRAM ST SEGMENT ABNORMAL [None]
  - DEPRESSION [None]
  - FEAR OF DEATH [None]
  - ANGIOMYOLIPOMA [None]
  - ANAEMIA [None]
  - NERVOUSNESS [None]
  - SUPRAVENTRICULAR TACHYCARDIA [None]
  - EMOTIONAL DISTRESS [None]
